FAERS Safety Report 4324715-9 (Version None)
Quarter: 2004Q1

REPORT INFORMATION
  Report Type: 
  Country: None (occurrence: None)
  Receive Date: 20040323
  Receipt Date: 20040310
  Transmission Date: 20041129
  Serious: Yes (Death, Hospitalization)
  Sender: FDA-Public Use
  Company Number: 03P-144-0239173-01

PATIENT
  Age: 59 Year
  Sex: Female
  Weight: 58 kg

DRUGS (19)
  1. HUMIRA [Suspect]
     Indication: RHEUMATOID ARTHRITIS
     Dosage: 1 IN 1 WK, SUBCUTANEOUS
     Route: 058
     Dates: start: 20030407, end: 20031031
  2. SULFASALAZINE [Concomitant]
  3. DEFLAZACORT [Concomitant]
  4. NOLOTIL [Concomitant]
  5. TRAMADOL HCL [Concomitant]
  6. NALIDIXIC ACID [Concomitant]
  7. GABAPENTIN [Concomitant]
  8. BETAMETHASONE [Concomitant]
  9. DEXCHLORPHENIRAMINE MALEATE [Concomitant]
  10. EBASTINE [Concomitant]
  11. AMBROXOL CHLORIDRATE [Concomitant]
  12. MAGMAIC METAMIZIDE [Concomitant]
  13. SULINDAC [Concomitant]
  14. DEXTRIPROPLEEN [Concomitant]
  15. PENTOSAN POLYSULFATE SODIUM [Concomitant]
  16. TETRAZEPAM [Concomitant]
  17. OSPOR [Concomitant]
  18. DOGOS [Concomitant]
  19. TRAMADOL HYROCHLORIDE [Concomitant]

REACTIONS (13)
  - BLOOD PH INCREASED [None]
  - CYTOMEGALOVIRUS INFECTION [None]
  - EMPHYSEMATOUS BULLA [None]
  - INTERSTITIAL LUNG DISEASE [None]
  - LYMPHOCYTE PERCENTAGE INCREASED [None]
  - NEUTROPHIL PERCENTAGE DECREASED [None]
  - PCO2 DECREASED [None]
  - PLEURISY [None]
  - PNEUMOTHORAX [None]
  - PO2 DECREASED [None]
  - PULMONARY EMBOLISM [None]
  - RESPIRATORY FAILURE [None]
  - STAPHYLOCOCCAL BACTERAEMIA [None]
